FAERS Safety Report 14009332 (Version 1)
Quarter: 2017Q3

REPORT INFORMATION
  Report Type: Spontaneous
  Country: US (occurrence: US)
  Receive Date: 20170925
  Receipt Date: 20170925
  Transmission Date: 20171128
  Serious: No
  Sender: FDA-Public Use
  Company Number: US-BAYER-2017-178411

PATIENT
  Sex: Female

DRUGS (1)
  1. SKYLA [Suspect]
     Active Substance: LEVONORGESTREL
     Indication: CONTRACEPTION
     Dosage: 14 MCG/24HR, CONT
     Route: 015
     Dates: start: 2015

REACTIONS (4)
  - Hypomenorrhoea [Unknown]
  - Menorrhagia [Unknown]
  - Dysmenorrhoea [Unknown]
  - Hypomenorrhoea [Unknown]

NARRATIVE: CASE EVENT DATE: 2015
